FAERS Safety Report 15222390 (Version 1)
Quarter: 2018Q4

REPORT INFORMATION
  Report Type: Spontaneous
  Country: ZA (occurrence: ZA)
  Receive Date: 20180731
  Receipt Date: 20180731
  Transmission Date: 20190204
  Serious: Yes (Other)
  Sender: FDA-Public Use
  Company Number: ZA-PFIZER INC-2018302937

PATIENT
  Age: 78 Year
  Sex: Male

DRUGS (2)
  1. ASPAVOR [Suspect]
     Active Substance: ATORVASTATIN
     Dosage: 20 MG, UNK
  2. RAN-PERINDOPRIL [Suspect]
     Active Substance: PERINDOPRIL
     Dosage: 4 MG, UNK

REACTIONS (1)
  - Deafness [Unknown]
